FAERS Safety Report 11616922 (Version 1)
Quarter: 2015Q4

REPORT INFORMATION
  Report Type: Spontaneous
  Country: US (occurrence: US)
  Receive Date: 20151009
  Receipt Date: 20151009
  Transmission Date: 20160304
  Serious: No
  Sender: FDA-Public Use
  Company Number: US-PFIZER INC-2015306832

PATIENT
  Age: 42 Year
  Sex: Female
  Weight: 68.48 kg

DRUGS (1)
  1. EMBEDA [Suspect]
     Active Substance: MORPHINE SULFATE\NALTREXONE HYDROCHLORIDE
     Indication: PAIN
     Dosage: 20 MG, 1X/DAY

REACTIONS (3)
  - Product taste abnormal [Unknown]
  - Hypoaesthesia oral [Unknown]
  - Dysgeusia [Unknown]
